FAERS Safety Report 6056637-X (Version None)
Quarter: 2009Q1

REPORT INFORMATION
  Report Type: 
  Country: None (occurrence: None)
  Receive Date: 20090129
  Receipt Date: 20090117
  Transmission Date: 20090719
  Serious: Yes (Other)
  Sender: FDA-Public Use
  Company Number: DE-PFIZER INC-2009157526

PATIENT

DRUGS (2)
  1. ZITHROMAX [Suspect]
     Indication: BRONCHITIS
     Dosage: 500 MG, 1X/DAY
     Dates: start: 20090107, end: 20090109
  2. ZITHROMAX [Suspect]
     Indication: BACTERIAL INFECTION

REACTIONS (2)
  - ASTHMA [None]
  - RESPIRATORY DEPRESSION [None]
